FAERS Safety Report 6479841-5 (Version None)
Quarter: 2009Q4

REPORT INFORMATION
  Report Type: 
  Country: None (occurrence: None)
  Receive Date: 20091202
  Receipt Date: 20091117
  Transmission Date: 20100525
  Serious: Yes (Hospitalization)
  Sender: FDA-Public Use
  Company Number: AUR-APL-2009-00442

PATIENT
  Age: 30 Year
  Sex: Female

DRUGS (9)
  1. ONDANSETRON [Suspect]
     Dosage: 4MG ONE TIME, IV
     Route: 042
     Dates: start: 20090806
  2. MORPHINE [Suspect]
  3. ATRACURIUM BESYLATE [Concomitant]
  4. CEFUROXIME [Concomitant]
  5. DEXAMETHASONE [Concomitant]
  6. METRONIDAZOLE [Concomitant]
  7. PARACETAMOL [Concomitant]
  8. PROPOFOL [Concomitant]
  9. REMIFENTANIL [Concomitant]

REACTIONS (3)
  - DYSKINESIA [None]
  - MUSCLE SPASMS [None]
  - POST PROCEDURAL COMPLICATION [None]
